FAERS Safety Report 6346235-2 (Version None)
Quarter: 2009Q3

REPORT INFORMATION
  Report Type: 
  Country: None (occurrence: None)
  Receive Date: 20090909
  Receipt Date: 20090903
  Transmission Date: 20100115
  Serious: Yes (Hospitalization, Other)
  Sender: FDA-Public Use
  Company Number: PHMT2006CA02098

PATIENT
  Sex: Female

DRUGS (5)
  1. SANDOSTATIN LAR [Suspect]
     Indication: CARCINOID TUMOUR
     Dosage: 60 MG EVERY 3 WEEKS
     Route: 030
     Dates: start: 20040320
  2. SANDOSTATIN LAR [Suspect]
     Dosage: 60 MG EVERY 4 WEEKS
     Route: 030
     Dates: start: 19980101
  3. ATENOLOL [Concomitant]
  4. INHIBACE [Concomitant]
  5. OXAZEPAM [Concomitant]

REACTIONS (20)
  - ABDOMINAL NEOPLASM [None]
  - BONE PAIN [None]
  - CHEST WALL MASS [None]
  - CYSTITIS [None]
  - DISEASE PROGRESSION [None]
  - FALLOPIAN TUBE CANCER [None]
  - FATIGUE [None]
  - FLANK PAIN [None]
  - FLUSHING [None]
  - INTESTINAL OBSTRUCTION [None]
  - LETHARGY [None]
  - LOWER RESPIRATORY TRACT INFECTION [None]
  - METASTASES TO BONE [None]
  - OVARIAN CANCER [None]
  - PELVIC NEOPLASM [None]
  - PNEUMONIA [None]
  - TUMOUR EXCISION [None]
  - UTERINE CANCER [None]
  - VAGINAL HAEMORRHAGE [None]
  - WHEEZING [None]
